FAERS Safety Report 9839549 (Version 1)
Quarter: 2014Q1

REPORT INFORMATION
  Report Type: Spontaneous
  Country: DE (occurrence: DE)
  Receive Date: 20140124
  Receipt Date: 20140124
  Transmission Date: 20141002
  Serious: Yes (Death, Other)
  Sender: FDA-Public Use
  Company Number: DE-ROCHE-1336264

PATIENT
  Age: 80 Year
  Sex: Female

DRUGS (2)
  1. BEVACIZUMAB [Suspect]
     Indication: MENINGIOMA MALIGNANT
     Route: 065
  2. DEXAMETHASONE [Concomitant]
     Route: 065

REACTIONS (4)
  - Abscess [Fatal]
  - Pneumonia [Fatal]
  - Sepsis [Fatal]
  - Cerebrovascular accident [Unknown]
